FAERS Safety Report 10951347 (Version 1)
Quarter: 2015Q1

REPORT INFORMATION
  Report Type: Spontaneous
  Country: US (occurrence: US)
  Receive Date: 20150324
  Receipt Date: 20150324
  Transmission Date: 20150721
  Serious: Yes (Death, Hospitalization)
  Sender: FDA-Public Use
  Company Number: PHHY2015US031312

PATIENT
  Age: 60 Year
  Sex: Male

DRUGS (2)
  1. OCTREOTIDE [Suspect]
     Active Substance: OCTREOTIDE
     Indication: INSULINOMA
     Dosage: 20 MG, UNK
     Route: 030
  2. EVEROLIMUS [Suspect]
     Active Substance: EVEROLIMUS
     Indication: INSULINOMA
     Dosage: UNK
     Route: 065
     Dates: start: 201012, end: 201102

REACTIONS (5)
  - Death [Fatal]
  - Pancreatic neuroendocrine tumour [Unknown]
  - Hypoglycaemia [Unknown]
  - Syncope [Recovered/Resolved]
  - Malignant neoplasm progression [Unknown]
